FAERS Safety Report 5989096-3 (Version None)
Quarter: 2008Q4

REPORT INFORMATION
  Report Type: 
  Country: None (occurrence: None)
  Receive Date: 20081209
  Receipt Date: 20081209
  Transmission Date: 20090506
  Serious: Yes (Life-Threatening)
  Sender: FDA-Public Use
  Company Number: None

PATIENT
  Age: 48 Year
  Sex: Female
  Weight: 78.9259 kg

DRUGS (1)
  1. NICORETTE [Suspect]
     Indication: PALPITATIONS
     Dosage: ONE FOURTH TO ONE HALF EVERY 4 TO 6 HOURS SL
     Route: 060
     Dates: start: 20081124, end: 20081208

REACTIONS (2)
  - PALPITATIONS [None]
  - PRODUCT QUALITY ISSUE [None]
